FAERS Safety Report 7427934-8 (Version None)
Quarter: 2011Q2

REPORT INFORMATION
  Report Type: 
  Country: None (occurrence: None)
  Receive Date: 20110412
  Receipt Date: 20110329
  Transmission Date: 20111010
  Serious: Yes (Hospitalization)
  Sender: FDA-Public Use
  Company Number: 2011001563

PATIENT
  Age: 55 Year
  Sex: Male

DRUGS (7)
  1. ERLOTINIB (ERLOTINIB) (TABLET) ERLOTINIB) [Suspect]
     Indication: COLORECTAL CANCER METASTATIC
     Dosage: (100 MG, DAILY) , ORAL
     Route: 048
     Dates: start: 20110318, end: 20110325
  2. OXYCONTIN [Concomitant]
  3. OXYCODONE HCL [Concomitant]
  4. IMODIUM MULTI-SYMPTOM RELIEF [Concomitant]
  5. PANITUMUMAB [Suspect]
     Indication: COLORECTAL CANCER METASTATIC
     Dosage: (640 MG,1 X PER 14 DAY), INTRAVENOUS
     Route: 042
     Dates: start: 20110304, end: 20110326
  6. NORCO (VICIDIN) [Concomitant]
  7. IRINOTECAN HCL [Suspect]
     Indication: COLORECTAL CANCER METASTATIC
     Dosage: (200 MG, 1 X PER 14 DAY), INTRAVENOUS
     Route: 042
     Dates: start: 20110304, end: 20110326

REACTIONS (5)
  - SMALL INTESTINAL OBSTRUCTION [None]
  - WHITE BLOOD CELL COUNT DECREASED [None]
  - HAEMOGLOBIN DECREASED [None]
  - ABDOMINAL ADHESIONS [None]
  - INFECTION [None]
